FAERS Safety Report 8143461-7 (Version None)
Quarter: 2012Q1

REPORT INFORMATION
  Report Type: 
  Country: None (occurrence: None)
  Receive Date: 20120217
  Receipt Date: 20120210
  Transmission Date: 20120608
  Serious: Yes (Other)
  Sender: FDA-Public Use
  Company Number: US-JNJFOC-2010002451

PATIENT
  Age: 79 Year
  Sex: Male
  Weight: 64.4 kg

DRUGS (5)
  1. BENADRYL [Suspect]
     Indication: PROPHYLAXIS
     Dosage: DAILY DOSE TEXT: 2 PILLS EVERY 4-6 HOURS TWICE DAILY
     Route: 048
     Dates: start: 20090301
  2. BENADRYL [Suspect]
     Indication: SINUS DISORDER
     Dosage: DAILY DOSE TEXT: 2 PILLS EVERY 4-6 HOURS TWICE DAILY
     Route: 048
     Dates: start: 20090301
  3. IMMUNE GLOBULIN NOS [Concomitant]
     Indication: PRODUCT USED FOR UNKNOWN INDICATION
     Dosage: DAILY DOSE TEXT: ONE TABLET TWICE DAILY
     Route: 065
  4. ACETAMINOPHEN [Suspect]
     Indication: PROPHYLAXIS
     Dosage: DAILY DOSE TEXT: ONE TABLET TWICE DAILY
     Route: 065
  5. ACETAMINOPHEN [Suspect]
     Indication: BACK PAIN
     Dosage: DAILY DOSE TEXT: ONE TABLET TWICE DAILY
     Route: 065

REACTIONS (7)
  - NAUSEA [None]
  - GAIT DISTURBANCE [None]
  - SKIN DISCOLOURATION [None]
  - VOMITING [None]
  - CHROMATURIA [None]
  - OFF LABEL USE [None]
  - PRODUCT QUALITY ISSUE [None]
